FAERS Safety Report 5613337-5 (Version None)
Quarter: 2008Q1

REPORT INFORMATION
  Report Type: 
  Country: None (occurrence: None)
  Receive Date: 20080205
  Receipt Date: 20080131
  Transmission Date: 20080703
  Serious: Yes (Life-Threatening, Hospitalization)
  Sender: FDA-Public Use
  Company Number: CA-SP-2008-00126

PATIENT
  Age: 66 Year
  Sex: Male

DRUGS (16)
  1. TUBERSOL [Suspect]
     Indication: TUBERCULIN TEST
     Route: 065
     Dates: start: 20080111
  2. PULMICORT [Concomitant]
     Dosage: BID
  3. BACTRIM [Concomitant]
     Indication: URINARY TRACT INFECTION
     Dates: start: 20071224, end: 20071231
  4. AMIORADONE [Concomitant]
     Dosage: OD
  5. PANTOLOC [Concomitant]
     Dosage: AT OD
  6. RESTORIL [Concomitant]
     Dosage: AT HS
  7. DILANTIN [Concomitant]
     Dosage: AT HS
  8. WARFARIN SODIUM [Concomitant]
     Dosage: OD
  9. LASIX [Concomitant]
     Dosage: BID
  10. SLOW-K [Concomitant]
     Dosage: BID
  11. SYNTHROID [Concomitant]
     Dosage: OD
  12. CHANTIX [Concomitant]
     Dates: start: 20071223, end: 20071225
  13. VENTOLIN [Concomitant]
     Dosage: QID
  14. ATROVENT [Concomitant]
     Dosage: QID
  15. PREDNISONE TAB [Concomitant]
  16. OXYGEN [Concomitant]
     Dosage: 2L/MIN

REACTIONS (9)
  - ERYTHEMA [None]
  - EYE SWELLING [None]
  - HYPERSENSITIVITY [None]
  - OCULAR HYPERAEMIA [None]
  - OEDEMA PERIPHERAL [None]
  - PRURITUS [None]
  - RASH GENERALISED [None]
  - SWELLING FACE [None]
  - URTICARIA [None]
